FAERS Safety Report 25302681 (Version 1)
Quarter: 2025Q2

REPORT INFORMATION
  Report Type: Spontaneous
  Country: IE (occurrence: None)
  Receive Date: 20250512
  Receipt Date: 20250512
  Transmission Date: 20250716
  Serious: Yes (Other)
  Sender: INCYTE
  Company Number: IE-002147023-NVSC2025IE074150

PATIENT
  Age: 43 Year

DRUGS (2)
  1. RUXOLITINIB [Suspect]
     Active Substance: RUXOLITINIB
     Indication: Splenomegaly
     Dosage: 15 MG, QD
     Route: 065
  2. ASPIRIN [Concomitant]
     Active Substance: ASPIRIN
     Indication: Splenomegaly
     Dosage: 75 MG, QD
     Route: 065

REACTIONS (1)
  - Transplant failure [Unknown]
